FAERS Safety Report 17787382 (Version 1)
Quarter: 2020Q2

REPORT INFORMATION
  Report Type: Spontaneous
  Country: US (occurrence: US)
  Receive Date: 20200514
  Receipt Date: 20200514
  Transmission Date: 20200714
  Serious: No
  Sender: FDA-Public Use
  Company Number: US-SA-2020SA120319

PATIENT
  Age: 53 Year
  Sex: Female

DRUGS (4)
  1. KEVZARA [Suspect]
     Active Substance: SARILUMAB
     Dosage: 200 MG, QOW
     Route: 058
     Dates: start: 202004
  2. PHENOBARBITAL. [Concomitant]
     Active Substance: PHENOBARBITAL
  3. MELOXICAM. [Concomitant]
     Active Substance: MELOXICAM
  4. DILANTIN [Concomitant]
     Active Substance: PHENYTOIN

REACTIONS (2)
  - Arthralgia [Not Recovered/Not Resolved]
  - Drug ineffective [Not Recovered/Not Resolved]
